FAERS Safety Report 4626274-X (Version None)
Quarter: 2005Q2

REPORT INFORMATION
  Report Type: 
  Country: None (occurrence: None)
  Receive Date: 20050331
  Receipt Date: 20040702
  Transmission Date: 20051028
  Serious: Yes (Hospitalization)
  Sender: FDA-Public Use
  Company Number: 200413286BCC

PATIENT
  Age: 59 Year
  Sex: Female
  Weight: 73.4827 kg

DRUGS (4)
  1. ALEVE [Suspect]
     Indication: BACK PAIN
     Dosage: 440 MG, ONCE, ORAL
     Route: 048
     Dates: start: 20040508
  2. EFFEXOR XR [Concomitant]
  3. ELAVIL [Concomitant]
  4. PREVACID [Concomitant]

REACTIONS (16)
  - ANAPHYLACTIC REACTION [None]
  - ASTHENIA [None]
  - BLOOD CREATININE INCREASED [None]
  - BLOOD PRESSURE DECREASED [None]
  - DIZZINESS [None]
  - DYSPNOEA [None]
  - ERYTHEMA [None]
  - FALL [None]
  - FATIGUE [None]
  - FEELING ABNORMAL [None]
  - FEELING HOT [None]
  - GENITAL BURNING SENSATION [None]
  - HYPERHIDROSIS [None]
  - PANIC ATTACK [None]
  - PRURITUS GENITAL [None]
  - WHEEZING [None]
